FAERS Safety Report 16789272 (Version 1)
Quarter: 2019Q3

REPORT INFORMATION
  Report Type: Report from Study
  Country: US (occurrence: US)
  Receive Date: 20190910
  Receipt Date: 20190910
  Transmission Date: 20191005
  Serious: Yes (Hospitalization)
  Sender: FDA-Public Use
  Company Number: US-ROCHE-2399046

PATIENT
  Sex: Male

DRUGS (1)
  1. ESBRIET [Suspect]
     Active Substance: PIRFENIDONE
     Indication: PULMONARY FIBROSIS
     Dosage: TAKE 3 TABLETS BY MOUTH 3 TIMES A DAY
     Route: 048

REACTIONS (3)
  - Blood glucose increased [Unknown]
  - Acute kidney injury [Unknown]
  - Dehydration [Unknown]
